FAERS Safety Report 10160794 (Version 3)
Quarter: 2014Q3

REPORT INFORMATION
  Report Type: Report from Study
  Country: US (occurrence: US)
  Receive Date: 20140508
  Receipt Date: 20140813
  Transmission Date: 20150326
  Serious: Yes (Hospitalization)
  Sender: FDA-Public Use
  Company Number: US-ACTELION-A-US2014-93775

PATIENT
  Age: 53 Year
  Sex: Female

DRUGS (2)
  1. TRACLEER [Suspect]
     Active Substance: BOSENTAN\BOSENTAN MONOHYDRATE
     Indication: PULMONARY ARTERIAL HYPERTENSION
     Dosage: UNK
     Route: 048
  2. XARELTO [Concomitant]
     Active Substance: RIVAROXABAN

REACTIONS (4)
  - Blood potassium decreased [Unknown]
  - Blood urine present [Unknown]
  - Urinary tract infection [Unknown]
  - Pain in extremity [Unknown]
